FAERS Safety Report 8972963 (Version 1)
Quarter: 2012Q4

REPORT INFORMATION
  Report Type: 
  Country: US (occurrence: US)
  Receive Date: 20121218
  Receipt Date: 20121218
  Transmission Date: 20130627
  Serious: No
  Sender: FDA-Public Use
  Company Number: US-BRISTOL-MYERS SQUIBB COMPANY-16458721

PATIENT
  Age: 58 Year
  Sex: Female

DRUGS (2)
  1. ABILIFY TABS 2 MG [Suspect]
     Dates: start: 2012
  2. WELLBUTRIN [Suspect]
     Dosage: Increased to 300mg

REACTIONS (2)
  - Energy increased [Unknown]
  - Depression [Not Recovered/Not Resolved]
